FAERS Safety Report 4360712-5 (Version None)
Quarter: 2004Q2

REPORT INFORMATION
  Report Type: 
  Country: None (occurrence: None)
  Receive Date: 20040514
  Receipt Date: 20040510
  Transmission Date: 20050107
  Serious: Yes (Life-Threatening, Hospitalization)
  Sender: FDA-Public Use
  Company Number: DEWYE749810MAY04

PATIENT
  Age: 73 Year
  Sex: Female

DRUGS (2)
  1. VENLAFAXINE HCL [Suspect]
     Dosage: 50 TABLETS (OVERDOSE AMOUNT:  7500 MG)
     Route: 048
     Dates: start: 20040508, end: 20040508
  2. LAMICTAL [Suspect]
     Dosage: 50 TABLETS (OVERDOSE AMOUNT:  1250 MG)
     Route: 048
     Dates: start: 20040508, end: 20040508

REACTIONS (3)
  - INTENTIONAL OVERDOSE [None]
  - LOSS OF CONSCIOUSNESS [None]
  - RESPIRATORY FAILURE [None]
